FAERS Safety Report 6856520-3 (Version None)
Quarter: 2010Q3

REPORT INFORMATION
  Report Type: 
  Country: None (occurrence: None)
  Receive Date: 20100719
  Receipt Date: 20100706
  Transmission Date: 20110219
  Serious: Yes (Hospitalization)
  Sender: FDA-Public Use
  Company Number: PHHY2010NO43977

PATIENT
  Sex: Female

DRUGS (7)
  1. VOLTAREN [Suspect]
     Indication: PROCEDURAL PAIN
     Dosage: 150 MG, TID
     Route: 048
     Dates: start: 20100512, end: 20100521
  2. PINEX FORTE [Concomitant]
     Indication: PROCEDURAL PAIN
     Dosage: 1-2 TABLETS 4 TIMES A DAY
     Route: 048
     Dates: start: 20100512, end: 20100521
  3. ONDANSETRON [Concomitant]
     Indication: PROCEDURAL NAUSEA
     Dosage: 4 MG, UNK
     Route: 048
     Dates: start: 20100512
  4. PETIDIN [Concomitant]
     Indication: POST PROCEDURAL COMPLICATION
     Route: 048
     Dates: start: 20100512
  5. FORTECORTIN [Concomitant]
     Indication: PROCEDURAL NAUSEA
     Route: 048
     Dates: start: 20100512
  6. REMIFENTANIL [Concomitant]
     Indication: ANAESTHESIA
     Dates: start: 20100512
  7. PROPOFOL [Concomitant]
     Indication: ANAESTHESIA
     Dates: start: 20100512

REACTIONS (2)
  - BLOOD AMYLASE INCREASED [None]
  - RENAL FAILURE ACUTE [None]
